FAERS Safety Report 12257072 (Version 1)
Quarter: 2016Q2

REPORT INFORMATION
  Report Type: Spontaneous
  Country: ES (occurrence: ES)
  Receive Date: 20160412
  Receipt Date: 20160412
  Transmission Date: 20160815
  Serious: Yes (Other)
  Sender: FDA-Public Use
  Company Number: ES-MYLANLABS-2016M1014728

PATIENT

DRUGS (1)
  1. GEMCITABINE [Suspect]
     Active Substance: GEMCITABINE\GEMCITABINE HYDROCHLORIDE
     Indication: PAPILLARY THYROID CANCER
     Dosage: 300 MG/M2, QW
     Route: 065

REACTIONS (4)
  - Erysipeloid [Recovered/Resolved]
  - Rash [Recovered/Resolved]
  - Pseudocellulitis [Recovered/Resolved]
  - Lymphoedema [Recovered/Resolved]
